FAERS Safety Report 7932795-4 (Version None)
Quarter: 2011Q4

REPORT INFORMATION
  Report Type: 
  Country: None (occurrence: None)
  Receive Date: 20111122
  Receipt Date: 20111115
  Transmission Date: 20120403
  Serious: Yes (Other)
  Sender: FDA-Public Use
  Company Number: CA-BRISTOL-MYERS SQUIBB COMPANY-16016370

PATIENT
  Age: 53 Year
  Sex: Female

DRUGS (5)
  1. ORENCIA [Suspect]
     Indication: RHEUMATOID ARTHRITIS
     Dosage: LAST INF:28-JUL-2011
     Route: 042
     Dates: start: 20061124
  2. METHOTREXATE [Suspect]
     Indication: RHEUMATOID ARTHRITIS
  3. PLAQUENIL [Concomitant]
  4. PREDNISONE TAB [Suspect]
     Indication: RHEUMATOID ARTHRITIS
  5. HYDROXYCHLOROQUINE SULFATE [Concomitant]

REACTIONS (3)
  - EXTRANODAL MARGINAL ZONE B-CELL LYMPHOMA (MALT TYPE) [None]
  - HELICOBACTER INFECTION [None]
  - ANAEMIA [None]
